FAERS Safety Report 12658236 (Version 1)
Quarter: 2016Q3

REPORT INFORMATION
  Report Type: Spontaneous
  Country: DE (occurrence: DE)
  Receive Date: 20160817
  Receipt Date: 20160817
  Transmission Date: 20161109
  Serious: Yes (Congenital Anomaly, Other)
  Sender: FDA-Public Use
  Company Number: DE-SUN PHARMACEUTICAL INDUSTRIES LTD-2016RR-121676

PATIENT
  Age: 1 Day
  Sex: Male
  Weight: 2.6 kg

DRUGS (5)
  1. SEROQUEL [Suspect]
     Active Substance: QUETIAPINE FUMARATE
     Indication: PSYCHOTIC DISORDER
     Dosage: 900(MG/D)/ FROM GW 33+5 REGULARLY
     Route: 064
  2. MIRTAZAPIN [Suspect]
     Active Substance: MIRTAZAPINE
     Indication: SCHIZOPHRENIA
     Dosage: 30(MG/D)/ FROM GW 33+5 REGULARLY
     Route: 064
  3. RISPERIDONE. [Suspect]
     Active Substance: RISPERIDONE
     Indication: SCHIZOPHRENIA
     Dosage: 2 MG/D2X1 MG/D
     Route: 064
  4. LORAZEPAM. [Suspect]
     Active Substance: LORAZEPAM
     Indication: SCHIZOPHRENIA
     Dosage: 0.5(MG/D)/FROM GW 33+5 0.5 DAILY, UNTIL GW 33+5 IRREGULARLY
     Route: 064
  5. VENLAFAXINE [Suspect]
     Active Substance: VENLAFAXINE HYDROCHLORIDE
     Indication: SCHIZOPHRENIA
     Dosage: 150(MG/D)/ START UNKNOWN, PROBABLY THIRD TRIMESTER
     Route: 064

REACTIONS (5)
  - Arachnoid cyst [Unknown]
  - Small for dates baby [Recovered/Resolved]
  - Selective eating disorder [Recovered/Resolved]
  - Congenital central nervous system anomaly [Not Recovered/Not Resolved]
  - Respiratory disorder neonatal [Recovered/Resolved]

NARRATIVE: CASE EVENT DATE: 20160403
